FAERS Safety Report 20169946 (Version 1)
Quarter: 2021Q4

REPORT INFORMATION
  Report Type: Spontaneous
  Country: US (occurrence: None)
  Receive Date: 20211209
  Receipt Date: 20211209
  Transmission Date: 20220303
  Serious: Yes (Hospitalization)
  Sender: FDA-Public Use
  Company Number: None

PATIENT
  Sex: Female

DRUGS (29)
  1. TACROLIMUS [Suspect]
     Active Substance: TACROLIMUS
     Indication: Liver transplant
     Dosage: FREQUENCY : TWICE A DAY;?
     Route: 048
     Dates: start: 20210410
  2. ALPRAZOLAM [Concomitant]
     Active Substance: ALPRAZOLAM
  3. ALPRAZOLAM ER [Concomitant]
     Active Substance: ALPRAZOLAM
  4. ASPIRIN CHW [Concomitant]
  5. ASPIRIN [Concomitant]
     Active Substance: ASPIRIN
  6. AZELASTINE [Concomitant]
     Active Substance: AZELASTINE
  7. BENZONATATE [Concomitant]
     Active Substance: BENZONATATE
  8. BUPROPION HYDROCHLORIDE [Concomitant]
     Active Substance: BUPROPION HYDROCHLORIDE
  9. CIPROFLOXACIN [Concomitant]
     Active Substance: CIPROFLOXACIN
  10. DAYVIGO [Concomitant]
     Active Substance: LEMBOREXANT
  11. EMGALITY [Concomitant]
     Active Substance: GALCANEZUMAB-GNLM
  12. ESTARYLLA [Concomitant]
     Active Substance: ETHINYL ESTRADIOL\NORGESTIMATE
  13. FAMOTIDINE [Concomitant]
     Active Substance: FAMOTIDINE
  14. FLUTICASONE SPR [Concomitant]
  15. IPRATROPIUM SPR [Concomitant]
  16. LORATADINE [Concomitant]
     Active Substance: LORATADINE
  17. METHYLPHENID ER [Concomitant]
  18. OLANZAPINE [Concomitant]
     Active Substance: OLANZAPINE
  19. OMEPRAZOLE [Concomitant]
     Active Substance: OMEPRAZOLE
  20. PANTOPRAZOLE [Concomitant]
     Active Substance: PANTOPRAZOLE
  21. PREDNISONE [Concomitant]
     Active Substance: PREDNISONE
  22. PROCHLORPER [Concomitant]
  23. ROSUVASTATIN [Concomitant]
     Active Substance: ROSUVASTATIN
  24. SUMATRIPTAN SPR [Concomitant]
  25. TOPAMAX [Concomitant]
     Active Substance: TOPIRAMATE
  26. TOPIRAMATE [Concomitant]
     Active Substance: TOPIRAMATE
  27. TRAMADOL HCL [Concomitant]
     Active Substance: TRAMADOL HYDROCHLORIDE
  28. VRAYLAR [Concomitant]
     Active Substance: CARIPRAZINE
  29. XANAX [Concomitant]
     Active Substance: ALPRAZOLAM

REACTIONS (2)
  - Back pain [None]
  - Therapy interrupted [None]
